FAERS Safety Report 5640953-7 (Version None)
Quarter: 2008Q1

REPORT INFORMATION
  Report Type: 
  Country: None (occurrence: None)
  Receive Date: 20080227
  Receipt Date: 20080215
  Transmission Date: 20080703
  Serious: Yes (Hospitalization)
  Sender: FDA-Public Use
  Company Number: JP-ROCHE-548425

PATIENT
  Age: 67 Year
  Sex: Male

DRUGS (2)
  1. PEGASYS [Suspect]
     Route: 058
     Dates: start: 20080213, end: 20080213
  2. POLARAMINE [Concomitant]

REACTIONS (2)
  - BLOOD CREATININE INCREASED [None]
  - PRURITUS [None]
